FAERS Safety Report 22023381 (Version 1)
Quarter: 2023Q1

REPORT INFORMATION
  Report Type: Spontaneous
  Country: BR (occurrence: BR)
  Receive Date: 20230223
  Receipt Date: 20230223
  Transmission Date: 20230418
  Serious: Yes (Other)
  Sender: FDA-Public Use
  Company Number: BR-ROCHE-2120635

PATIENT
  Age: 47 Year
  Sex: Female

DRUGS (6)
  1. CLONAZEPAM [Suspect]
     Active Substance: CLONAZEPAM
     Indication: Agitation
     Dosage: UNTIL 20 DROPS
  2. CLONAZEPAM [Suspect]
     Active Substance: CLONAZEPAM
     Indication: Sleep disorder therapy
     Dosage: UNTIL 20 DROPS
  3. CLONAZEPAM [Suspect]
     Active Substance: CLONAZEPAM
     Indication: Agitation
  4. CLONAZEPAM [Suspect]
     Active Substance: CLONAZEPAM
     Indication: Sleep disorder therapy
  5. GEODON [Concomitant]
     Active Substance: ZIPRASIDONE HYDROCHLORIDE\ZIPRASIDONE MESYLATE
  6. LEVOMEPROMAZINE [Concomitant]
     Active Substance: LEVOMEPROMAZINE

REACTIONS (9)
  - Diabetes mellitus [Unknown]
  - Product delivery mechanism issue [Unknown]
  - Sluggishness [Recovered/Resolved]
  - Accidental exposure to product [Unknown]
  - Insomnia [Recovered/Resolved]
  - Agitation [Recovered/Resolved]
  - Micturition urgency [Recovered/Resolved]
  - Product administration error [Unknown]
  - Product use in unapproved indication [Unknown]

NARRATIVE: CASE EVENT DATE: 20180427
